FAERS Safety Report 10902787 (Version 3)
Quarter: 2015Q1

REPORT INFORMATION
  Report Type: Report from Study
  Country: AT (occurrence: AT)
  Receive Date: 20150310
  Receipt Date: 20150316
  Transmission Date: 20150721
  Serious: Yes (Hospitalization)
  Sender: FDA-Public Use
  Company Number: AT-ABBVIE-15P-009-1357673-00

PATIENT
  Age: 75 Year
  Sex: Female

DRUGS (1)
  1. DUODOPA [Suspect]
     Active Substance: CARBIDOPA\LEVODOPA
     Indication: PARKINSONISM
     Dosage: MD 10.0 ML ED 2.0 ML CR 4,0 ML/H (6 AM TO 12 PM)
     Route: 050
     Dates: start: 20140205

REACTIONS (6)
  - Procedural complication [Unknown]
  - Device dislocation [Recovered/Resolved]
  - Deep brain stimulation [Unknown]
  - Incorrect route of drug administration [Unknown]
  - Device alarm issue [Unknown]
  - Device occlusion [Unknown]

NARRATIVE: CASE EVENT DATE: 20150302
